FAERS Safety Report 17893560 (Version 1)
Quarter: 2020Q2

REPORT INFORMATION
  Report Type: Spontaneous
  Country: ES (occurrence: ES)
  Receive Date: 20200615
  Receipt Date: 20200615
  Transmission Date: 20200714
  Serious: Yes (Life-Threatening, Hospitalization)
  Sender: FDA-Public Use
  Company Number: ES-CADILA HEALTHCARE LIMITED-ES-ZYDUS-027945

PATIENT

DRUGS (4)
  1. VENLAFAXINE [Suspect]
     Active Substance: VENLAFAXINE HYDROCHLORIDE
     Indication: DEPRESSION
     Route: 048
     Dates: start: 201106
  2. ALDOCUMAR [Suspect]
     Active Substance: WARFARIN SODIUM
     Indication: CEREBRAL VENOUS THROMBOSIS
     Dosage: 1 MG STRENGTH ()
     Route: 048
     Dates: start: 201508, end: 20160703
  3. NEURONTIN [Concomitant]
     Active Substance: GABAPENTIN
     Indication: PRODUCT USED FOR UNKNOWN INDICATION
     Dosage: 1200 MILLIGRAM,1200 MG DAILY,(INTERVAL :1 DAYS)
     Route: 048
     Dates: start: 2010, end: 20160703
  4. CETIRIZINA [Suspect]
     Active Substance: CETIRIZINE HYDROCHLORIDE
     Indication: DEPRESSION
     Dosage: 75 MILLIGRAM,75 MG, UNK
     Route: 048
     Dates: start: 201106

REACTIONS (1)
  - Subarachnoid haemorrhage [Recovered/Resolved]

NARRATIVE: CASE EVENT DATE: 20160702
